FAERS Safety Report 7579207-0 (Version None)
Quarter: 2011Q2

REPORT INFORMATION
  Report Type: 
  Country: None (occurrence: None)
  Receive Date: 20110628
  Receipt Date: 20110615
  Transmission Date: 20111010
  Serious: Yes (Hospitalization)
  Sender: FDA-Public Use
  Company Number: US-ELI_LILLY_AND_COMPANY-US201105002132

PATIENT
  Age: 73 Year
  Sex: Female

DRUGS (2)
  1. HALOPERIDOL DECANOATE [Concomitant]
  2. ZYPREXA [Suspect]
     Dosage: 5 MG, DAILY (1/D)

REACTIONS (2)
  - BLOOD CREATINE PHOSPHOKINASE INCREASED [None]
  - CAMPTOCORMIA [None]
